FAERS Safety Report 8056818-X (Version None)
Quarter: 2012Q1

REPORT INFORMATION
  Report Type: 
  Country: None (occurrence: None)
  Receive Date: 20120119
  Receipt Date: 20120113
  Transmission Date: 20120608
  Serious: Yes (Other)
  Sender: FDA-Public Use
  Company Number: JP-GLAXOSMITHKLINE-B0775707A

PATIENT
  Sex: Female

DRUGS (3)
  1. UNKNOWN DRUG [Concomitant]
     Indication: ASTHMA
  2. FLUTICASONE PROPIONATE/SALMETEROL [Suspect]
     Indication: ASTHMA
     Route: 055
     Dates: start: 20110101
  3. FLUTICASONE PROPIONATE/SALMETEROL [Suspect]
     Route: 055

REACTIONS (3)
  - STOMATITIS [None]
  - NASOPHARYNGITIS [None]
  - ASTHMA [None]
